FAERS Safety Report 6536939-0 (Version None)
Quarter: 2010Q1

REPORT INFORMATION
  Report Type: 
  Country: None (occurrence: None)
  Receive Date: 20100113
  Receipt Date: 20100108
  Transmission Date: 20100710
  Serious: Yes (Other)
  Sender: FDA-Public Use
  Company Number: US-AMGEN-US384485

PATIENT
  Sex: Male
  Weight: 109 kg

DRUGS (2)
  1. NPLATE [Suspect]
     Indication: THROMBOCYTOPENIA
     Dates: start: 20080101
  2. RITUXAN [Concomitant]

REACTIONS (12)
  - BLOOD LACTATE DEHYDROGENASE ABNORMAL [None]
  - CHRONIC MYELOID LEUKAEMIA [None]
  - COUGH [None]
  - DIARRHOEA [None]
  - EPISTAXIS [None]
  - FLATULENCE [None]
  - FREQUENT BOWEL MOVEMENTS [None]
  - GASTROINTESTINAL DISORDER [None]
  - INJECTION SITE PAIN [None]
  - PLATELET COUNT DECREASED [None]
  - SPLENOMEGALY [None]
  - WHITE BLOOD CELL COUNT INCREASED [None]
